FAERS Safety Report 4534697-2 (Version None)
Quarter: 2004Q4

REPORT INFORMATION
  Report Type: 
  Country: None (occurrence: None)
  Receive Date: 20041222
  Receipt Date: 20031107
  Transmission Date: 20050328
  Serious: Yes (Other)
  Sender: FDA-Public Use
  Company Number: US-BRISTOL-MYERS SQUIBB COMPANY-12430518

PATIENT
  Age: 55 Year
  Sex: Female
  Weight: 62 kg

DRUGS (10)
  1. PRAVACHOL [Suspect]
     Indication: BLOOD CHOLESTEROL INCREASED
     Route: 048
     Dates: start: 20030801, end: 20031104
  2. INDERAL [Concomitant]
  3. NEXIUM [Concomitant]
  4. CENTRUM [Concomitant]
  5. PROMETRIUM [Concomitant]
  6. VITAMIN E [Concomitant]
  7. CALCIUM [Concomitant]
  8. CHONDROITIN SULFATE [Concomitant]
  9. GLUCOSAMINE [Concomitant]
  10. ESTROGEN [Concomitant]

REACTIONS (1)
  - CATARACT [None]
